FAERS Safety Report 5090566-3 (Version None)
Quarter: 2006Q3

REPORT INFORMATION
  Report Type: 
  Country: None (occurrence: None)
  Receive Date: 20060828
  Receipt Date: 20060607
  Transmission Date: 20061208
  Serious: No
  Sender: FDA-Public Use
  Company Number: US-GLAXOSMITHKLINE-A0608253A

PATIENT
  Sex: Male

DRUGS (22)
  1. WELLBUTRIN XL [Suspect]
     Indication: DEPRESSION
     Dosage: 300MG PER DAY
     Route: 048
     Dates: start: 20040101
  2. SONATA [Concomitant]
  3. MULTI-VITAMIN [Concomitant]
  4. ASCORBIC ACID [Concomitant]
  5. VIT B [Concomitant]
  6. VITAMIN A [Concomitant]
  7. GARLIC [Concomitant]
  8. VITAMIN E [Concomitant]
  9. GREEN TEA [Concomitant]
  10. OMEGA 3 [Concomitant]
  11. FLAX SEED [Concomitant]
  12. MUCINEX [Concomitant]
  13. ANTIHISTAMINE [Concomitant]
  14. DECONGESTANT [Concomitant]
  15. NASAL DECONGESTANT [Concomitant]
  16. MAGNESIUM [Concomitant]
  17. ZINC [Concomitant]
  18. ACIDOPHILUS [Concomitant]
  19. PAPAYA ENZYMES [Concomitant]
  20. TUMS [Concomitant]
  21. DHEA [Concomitant]
  22. ALCOHOL [Concomitant]

REACTIONS (2)
  - DRUG INTERACTION [None]
  - LETHARGY [None]
